FAERS Safety Report 6395721-8 (Version None)
Quarter: 2009Q4

REPORT INFORMATION
  Report Type: 
  Country: None (occurrence: None)
  Receive Date: 20091007
  Receipt Date: 20091005
  Transmission Date: 20100525
  Serious: Yes (Other)
  Sender: FDA-Public Use
  Company Number: CARBOPLATIN-SEPTEMBER-01

PATIENT
  Age: 14 Year
  Sex: Female

DRUGS (1)
  1. CARBOPLATIN [Suspect]
     Indication: NEPHROBLASTOMA

REACTIONS (2)
  - FANCONI SYNDROME [None]
  - HYPOURICAEMIA [None]
